FAERS Safety Report 4830197-0 (Version None)
Quarter: 2005Q4

REPORT INFORMATION
  Report Type: 
  Country: None (occurrence: None)
  Receive Date: 20051115
  Receipt Date: 20051115
  Transmission Date: 20060501
  Serious: Yes (Other)
  Sender: FDA-Public Use
  Company Number: None

PATIENT
  Sex: Male

DRUGS (33)
  1. GATIFLOXACIN [Suspect]
     Indication: PNEUMONIA
     Dosage: 400 MG PO QD
     Route: 048
     Dates: start: 20050510, end: 20050522
  2. GATIFLOXACIN [Suspect]
     Indication: PNEUMONIA
     Dosage: 400 MG PO QD
     Route: 048
     Dates: start: 20050815, end: 20050822
  3. ACCU-CHEK COMFORT CURVE-H/LO CTL SOLN [Concomitant]
  4. ACCU-CHEK CV TEST STRIP [Concomitant]
  5. ALBUTEROL 90/IPRATROP 18MCG [Concomitant]
  6. ALLOPURINOL [Concomitant]
  7. AMLODIPINE BESYLATE [Concomitant]
  8. ASPIRIN [Concomitant]
  9. ATENOLOL [Concomitant]
  10. ATORVASTATIN CALCIUM [Concomitant]
  11. CALCIUM GLUCONATE [Concomitant]
  12. CLOPIDOGREL BILSULFATE [Concomitant]
  13. CODEINE [Concomitant]
  14. COLCHICINE [Concomitant]
  15. EZETIMIBE [Concomitant]
  16. FERROUS SO4 [Concomitant]
  17. FOSINOPHIL NA [Concomitant]
  18. FUROSEMIDE [Concomitant]
  19. GATIFLOXACIN [Concomitant]
  20. HUMULIN N [Concomitant]
  21. HUMULIN R [Concomitant]
  22. INSULIN SYRINGE [Concomitant]
  23. LANCET [Concomitant]
  24. NIACIN [Concomitant]
  25. NITROGLYCERIN [Concomitant]
  26. OMEPRAZOLE [Concomitant]
  27. ROSIGLITAZONE MALEATE [Concomitant]
  28. CYANOCOBALAMIN [Concomitant]
  29. EPOETIN ALFA, RECOMB [Concomitant]
  30. FOLIC ACID [Concomitant]
  31. POLIMYXIN/TRIMETHOPRIM 0.1% OPH SOLN [Concomitant]
  32. PREDNISOLONE ACETATE 1% OPH SUSP [Concomitant]
  33. PYRIDOXINE HCL [Concomitant]

REACTIONS (2)
  - BLOOD CREATININE INCREASED [None]
  - EOSINOPHILIA [None]
